FAERS Safety Report 7264048-4 (Version None)
Quarter: 2011Q1

REPORT INFORMATION
  Report Type: 
  Country: None (occurrence: None)
  Receive Date: 20110130
  Receipt Date: 20101229
  Transmission Date: 20110831
  Serious: No
  Sender: FDA-Public Use
  Company Number: US-ABBOTT-10P-163-0694491-00

PATIENT
  Age: 48 Year
  Sex: Female

DRUGS (6)
  1. PLAQUENIL [Concomitant]
     Indication: PRODUCT USED FOR UNKNOWN INDICATION
  2. ARAVA [Concomitant]
     Indication: PRODUCT USED FOR UNKNOWN INDICATION
  3. HUMIRA [Suspect]
     Indication: RHEUMATOID ARTHRITIS
     Dates: start: 20101214
  4. MUCINEX COUGH AND CONGESTION [Concomitant]
     Indication: COUGH
  5. VOLTAREN [Concomitant]
     Indication: INFLAMMATION
  6. MUCINEX COUGH AND CONGESTION [Concomitant]
     Indication: DRY MOUTH
     Dosage: DAILY

REACTIONS (5)
  - RASH [None]
  - SKIN WARM [None]
  - PRURITUS [None]
  - INJECTION SITE ERYTHEMA [None]
  - FEELING HOT [None]
